FAERS Safety Report 4441045-5 (Version None)
Quarter: 2004Q3

REPORT INFORMATION
  Report Type: 
  Country: None (occurrence: None)
  Receive Date: 20040902
  Receipt Date: 20040902
  Transmission Date: 20050211
  Serious: Yes (Life-Threatening)
  Sender: FDA-Public Use
  Company Number: None

PATIENT
  Age: 55 Year
  Sex: Female
  Weight: 68.0396 kg

DRUGS (6)
  1. PROCRIT [Suspect]
     Indication: BREAST CANCER
     Dosage: ONCE A WEEK
     Route: 058
     Dates: start: 20040102, end: 20040422
  2. PROCRIT [Suspect]
     Indication: DEEP VEIN THROMBOSIS
     Dosage: ONCE A WEEK
     Route: 058
     Dates: start: 20040102, end: 20040422
  3. PROCRIT [Suspect]
     Indication: OSTEOPOROSIS
     Dosage: ONCE A WEEK
     Route: 058
     Dates: start: 20040102, end: 20040422
  4. ANTI-COAGULANT [Concomitant]
  5. PROTIMES [Concomitant]
  6. INR'S [Concomitant]

REACTIONS (3)
  - DEEP VEIN THROMBOSIS [None]
  - JUGULAR VEIN THROMBOSIS [None]
  - SUBCLAVIAN VEIN THROMBOSIS [None]
